FAERS Safety Report 20113898 (Version 1)
Quarter: 2021Q4

REPORT INFORMATION
  Report Type: Report from Study
  Country: TH (occurrence: TH)
  Receive Date: 20211125
  Receipt Date: 20211125
  Transmission Date: 20220303
  Serious: Yes (Death, Other)
  Sender: FDA-Public Use
  Company Number: TH-NOVARTISPH-NVSC2021TH074880

PATIENT
  Age: 81 Year
  Sex: Male

DRUGS (1)
  1. KISQALI [Suspect]
     Active Substance: RIBOCICLIB
     Indication: Breast cancer metastatic
     Dosage: 2 DF, QD
     Route: 048

REACTIONS (5)
  - Death [Fatal]
  - Metastases to lung [Unknown]
  - Product use issue [Unknown]
  - Abdominal pain [Recovered/Resolved]
  - Diarrhoea [Unknown]

NARRATIVE: CASE EVENT DATE: 20210409
